FAERS Safety Report 7960923-3 (Version None)
Quarter: 2011Q4

REPORT INFORMATION
  Report Type: 
  Country: None (occurrence: None)
  Receive Date: 20111202
  Receipt Date: 20111117
  Transmission Date: 20120403
  Serious: Yes (Other)
  Sender: FDA-Public Use
  Company Number: 2011MA016774

PATIENT
  Sex: Female

DRUGS (2)
  1. SERTRALINE HYDROCHLORIDE [Suspect]
     Dosage: 50 MG
     Dates: start: 20111103
  2. SERTRALINE HYDROCHLORIDE [Suspect]
     Dosage: 50 MG
     Dates: start: 20111103

REACTIONS (2)
  - VISION BLURRED [None]
  - MYDRIASIS [None]
